FAERS Safety Report 14308433 (Version 11)
Quarter: 2019Q4

REPORT INFORMATION
  Report Type: Report from Study
  Country: DE (occurrence: DE)
  Receive Date: 20171220
  Receipt Date: 20191001
  Transmission Date: 20200122
  Serious: Yes (Hospitalization, Other)
  Sender: FDA-Public Use
  Company Number: DE-PFIZER INC-2017539711

PATIENT
  Age: 64 Year
  Sex: Male
  Weight: 59 kg

DRUGS (10)
  1. AFLIBERCEPT [Suspect]
     Active Substance: AFLIBERCEPT
     Indication: COLORECTAL CANCER METASTATIC
     Dosage: 110 MG, CYCLIC
     Route: 041
     Dates: start: 20141208, end: 20141208
  2. AFLIBERCEPT [Suspect]
     Active Substance: AFLIBERCEPT
     Dosage: 252 MG, CYCLIC
     Route: 041
     Dates: start: 20150202, end: 20150202
  3. LEUCOVORIN. [Suspect]
     Active Substance: LEUCOVORIN
     Dosage: 273 MG, CYCLIC
     Route: 041
     Dates: start: 20150202
  4. PEGYLATED LIPOSOMAL IRINOTECAN [Suspect]
     Active Substance: IRINOTECAN HYDROCHLORIDE
     Indication: COLORECTAL CANCER METASTATIC
     Dosage: 105 MG, CYCLIC
     Route: 041
     Dates: start: 20141208, end: 20141208
  5. 5-FU [Suspect]
     Active Substance: FLUOROURACIL
     Dosage: 2753 MG, CYCLIC
     Route: 041
     Dates: start: 20150202
  6. LEUCOVORIN. [Suspect]
     Active Substance: LEUCOVORIN
     Indication: COLORECTAL CANCER METASTATIC
     Dosage: 262 MG, CYCLIC
     Route: 041
     Dates: start: 20141208, end: 20141208
  7. PANTOPRAZOLE [Concomitant]
     Active Substance: PANTOPRAZOLE
     Indication: PROPHYLAXIS AGAINST GASTROINTESTINAL ULCER
     Dosage: UNK
     Dates: start: 2014
  8. PEGYLATED LIPOSOMAL IRINOTECAN [Suspect]
     Active Substance: IRINOTECAN HYDROCHLORIDE
     Dosage: 110 MG, CYCLIC
     Route: 041
     Dates: start: 20141208, end: 20141208
  9. PEGYLATED LIPOSOMAL IRINOTECAN [Suspect]
     Active Substance: IRINOTECAN HYDROCHLORIDE
     Dosage: 110 MG, CYCLIC
     Route: 041
     Dates: start: 20150202
  10. 5-FU [Suspect]
     Active Substance: FLUOROURACIL
     Indication: COLORECTAL CANCER METASTATIC
     Dosage: 2640 MG, CYCLIC
     Route: 041
     Dates: start: 20141208, end: 20141208

REACTIONS (3)
  - Pulmonary embolism [Recovered/Resolved]
  - Acute hepatic failure [Not Recovered/Not Resolved]
  - Dehydration [Recovered/Resolved]

NARRATIVE: CASE EVENT DATE: 20150209
